FAERS Safety Report 21581507 (Version 2)
Quarter: 2022Q4

REPORT INFORMATION
  Report Type: Spontaneous
  Country: US (occurrence: US)
  Receive Date: 20221111
  Receipt Date: 20221121
  Transmission Date: 20230113
  Serious: No
  Sender: FDA-Public Use
  Company Number: US-MICRO LABS LIMITED-ML2022-05436

PATIENT
  Age: 71 Year
  Sex: Female

DRUGS (1)
  1. DORZOLAMIDE\TIMOLOL [Suspect]
     Active Substance: DORZOLAMIDE\TIMOLOL
     Indication: Glaucoma
     Dosage: ONE DROP TO BOTH EYES TWICE DAILY

REACTIONS (3)
  - No adverse event [Unknown]
  - Product packaging quantity issue [Unknown]
  - Product dose omission issue [Unknown]
